FAERS Safety Report 16923180 (Version 2)
Quarter: 2019Q4

REPORT INFORMATION
  Report Type: Spontaneous
  Country: US (occurrence: US)
  Receive Date: 20191016
  Receipt Date: 20191108
  Transmission Date: 20200122
  Serious: Yes (Life-Threatening, Hospitalization, Other)
  Sender: FDA-Public Use
  Company Number: US-AUROBINDO-AUR-APL-2019-066360

PATIENT
  Age: 25 Year
  Sex: Female

DRUGS (1)
  1. LOPERAMIDE [Suspect]
     Active Substance: LOPERAMIDE
     Indication: DRUG WITHDRAWAL SYNDROME
     Dosage: UNK
     Route: 048

REACTIONS (8)
  - Ophthalmoplegia [Unknown]
  - Intentional product misuse [Unknown]
  - Tachycardia [Recovered/Resolved]
  - Cardiotoxicity [Recovered/Resolved]
  - Drug level above therapeutic [Unknown]
  - Blood creatinine increased [Unknown]
  - Depression [Unknown]
  - Toxicity to various agents [Unknown]
